FAERS Safety Report 19845366 (Version 1)
Quarter: 2021Q3

REPORT INFORMATION
  Report Type: Spontaneous
  Country: US (occurrence: US)
  Receive Date: 20210916
  Receipt Date: 20210916
  Transmission Date: 20211014
  Serious: Yes (Other)
  Sender: FDA-Public Use
  Company Number: None

PATIENT
  Sex: Male
  Weight: 77.4 kg

DRUGS (2)
  1. LAMOTRIGINE TAB 200MG [Suspect]
     Active Substance: LAMOTRIGINE
     Indication: SEIZURE
     Dosage: ?          QUANTITY:90 TABLET(S);?
     Route: 048
     Dates: start: 20200501, end: 20210908
  2. VIMPAT [Concomitant]
     Active Substance: LACOSAMIDE

REACTIONS (8)
  - Gastrooesophageal reflux disease [None]
  - Fall [None]
  - Seizure [None]
  - Dizziness [None]
  - Back pain [None]
  - Diplopia [None]
  - Myoclonus [None]
  - Manufacturing issue [None]
